FAERS Safety Report 7976419-9 (Version None)
Quarter: 2011Q4

REPORT INFORMATION
  Report Type: 
  Country: None (occurrence: None)
  Receive Date: 20111213
  Receipt Date: 20111020
  Transmission Date: 20120403
  Serious: No
  Sender: FDA-Public Use
  Company Number: US-AMGEN-USASP2011054484

PATIENT
  Age: 31 Year
  Sex: Female
  Weight: 59.41 kg

DRUGS (3)
  1. ZYRTEC [Concomitant]
     Dosage: 10 MG, UNK
  2. DROSPIRENONE AND ETHINYL ESTRADIOL [Concomitant]
     Dosage: 3-0.03 MG
  3. ENBREL [Suspect]
     Indication: PRODUCT USED FOR UNKNOWN INDICATION
     Dosage: 50 MG, UNK

REACTIONS (1)
  - HEADACHE [None]
